FAERS Safety Report 4878514-X (Version None)
Quarter: 2006Q1

REPORT INFORMATION
  Report Type: 
  Country: None (occurrence: None)
  Receive Date: 20060110
  Receipt Date: 20060110
  Transmission Date: 20060701
  Serious: Yes (Other)
  Sender: FDA-Public Use
  Company Number: None

PATIENT
  Age: 61 Year
  Sex: Male
  Weight: 90.7194 kg

DRUGS (2)
  1. ADVAIR DISKUS 250/50 [Suspect]
     Indication: ASTHMA
     Dosage: ONE PUFF PO TWICE A DAY
     Route: 048
  2. PROVENTIL [Concomitant]

REACTIONS (3)
  - DRUG INEFFECTIVE [None]
  - LUNG DISORDER [None]
  - PHARMACEUTICAL PRODUCT COMPLAINT [None]
